FAERS Safety Report 9204489 (Version 5)
Quarter: 2013Q3

REPORT INFORMATION
  Report Type: Report from Study
  Country: JP (occurrence: JP)
  Receive Date: 20130402
  Receipt Date: 20130701
  Transmission Date: 20140515
  Serious: Yes (Hospitalization, Disabling)
  Sender: FDA-Public Use
  Company Number: JP-ROCHE-1209254

PATIENT
  Age: 86 Year
  Sex: Male

DRUGS (3)
  1. RANIBIZUMAB [Suspect]
     Indication: AGE-RELATED MACULAR DEGENERATION
     Dosage: LAST DOSE RECEIVED ON 26/FEB/2013
     Route: 050
     Dates: start: 20130129
  2. CARNACULIN [Concomitant]
  3. JUVELA NICOTINATE [Concomitant]

REACTIONS (1)
  - Cerebral infarction [Recovered/Resolved with Sequelae]
